FAERS Safety Report 13837144 (Version 1)
Quarter: 2017Q3

REPORT INFORMATION
  Report Type: Spontaneous
  Country: US (occurrence: US)
  Receive Date: 20170804
  Receipt Date: 20170804
  Transmission Date: 20171127
  Serious: No
  Sender: FDA-Public Use
  Company Number: US-ROCHE-695473

PATIENT
  Age: 67 Year
  Sex: Female

DRUGS (6)
  1. CALCIUM [Concomitant]
     Active Substance: CALCIUM
     Route: 065
  2. MAXZIDE [Concomitant]
     Active Substance: HYDROCHLOROTHIAZIDE\TRIAMTERENE
     Route: 065
  3. BONIVA [Suspect]
     Active Substance: IBANDRONATE SODIUM
     Indication: OSTEOPOROSIS
     Route: 048
  4. ZOCOR [Concomitant]
     Active Substance: SIMVASTATIN
     Route: 065
  5. XANAX [Concomitant]
     Active Substance: ALPRAZOLAM
     Route: 065
  6. COQ10 PLUS PRODUCT NOS [Concomitant]
     Active Substance: DIETARY SUPPLEMENT\HERBALS\HOMEOPATHICS\UBIDECARENONE
     Dosage: DRUG REPORTED AS COQ10
     Route: 065

REACTIONS (3)
  - Epigastric discomfort [Recovered/Resolved]
  - Alopecia [Recovered/Resolved]
  - Fall [Unknown]
